FAERS Safety Report 16300978 (Version 4)
Quarter: 2022Q2

REPORT INFORMATION
  Report Type: Spontaneous
  Country: US (occurrence: None)
  Receive Date: 20190510
  Receipt Date: 20220405
  Transmission Date: 20220721
  Serious: Yes (Disabling, Other)
  Sender: FDA-Public Use
  Company Number: 2019SE63939

PATIENT
  Age: 35 Year
  Sex: Female
  Weight: 99.8 kg

DRUGS (108)
  1. NEXIUM [Suspect]
     Active Substance: ESOMEPRAZOLE MAGNESIUM
     Indication: Gastrooesophageal reflux disease
     Route: 048
     Dates: start: 201201, end: 201401
  2. NEXIUM [Suspect]
     Active Substance: ESOMEPRAZOLE MAGNESIUM
     Indication: Gastrooesophageal reflux disease
     Route: 048
     Dates: start: 2009, end: 2014
  3. PRILOSEC [Suspect]
     Active Substance: OMEPRAZOLE MAGNESIUM
     Indication: Gastrooesophageal reflux disease
     Route: 048
     Dates: start: 201201, end: 201401
  4. PRILOSEC [Suspect]
     Active Substance: OMEPRAZOLE MAGNESIUM
     Indication: Gastrooesophageal reflux disease
     Route: 048
     Dates: start: 2009, end: 2015
  5. PRILOSEC [Suspect]
     Active Substance: OMEPRAZOLE MAGNESIUM
     Indication: Gastrooesophageal reflux disease
     Dosage: GENERIC
     Route: 065
     Dates: start: 2009, end: 2015
  6. SEROQUEL [Concomitant]
     Active Substance: QUETIAPINE FUMARATE
  7. CELEXA [Concomitant]
     Active Substance: CITALOPRAM HYDROBROMIDE
  8. ALPRAZOLAM [Concomitant]
     Active Substance: ALPRAZOLAM
     Indication: Anxiety
  9. CHOLINE/THEOBROMA CACAO/OXITRIPTAN/GLUTAMIC ACID/TRAZODONE/VITIS VINIF [Concomitant]
     Indication: Sleep disorder
  10. HYDROCODONE [Concomitant]
     Active Substance: HYDROCODONE
     Indication: Pain
  11. METOPROLOL [Concomitant]
     Active Substance: METOPROLOL
     Indication: Hypertension
  12. GABAPENTIN [Concomitant]
     Active Substance: GABAPENTIN
     Indication: Fibromyalgia
  13. HYDROXYZINE [Concomitant]
     Active Substance: HYDROXYZINE HYDROCHLORIDE
     Indication: Anxiety
  14. LEVETIRACETAM [Concomitant]
     Active Substance: LEVETIRACETAM
  15. DIVALPROEX SODIUM [Concomitant]
     Active Substance: DIVALPROEX SODIUM
  16. LORAZEPAM [Concomitant]
     Active Substance: LORAZEPAM
  17. MORPHINE [Concomitant]
     Active Substance: MORPHINE
     Indication: Pain
  18. MORPHINE [Concomitant]
     Active Substance: MORPHINE
     Indication: Fibromyalgia
  19. TOPIRAMATE [Concomitant]
     Active Substance: TOPIRAMATE
  20. BACLOFEN [Concomitant]
     Active Substance: BACLOFEN
     Indication: Pain
  21. BENADRYL [Concomitant]
     Active Substance: DIPHENHYDRAMINE HYDROCHLORIDE
     Indication: Pruritus
  22. TYLENOL [Concomitant]
     Active Substance: ACETAMINOPHEN
     Indication: Pain
  23. IBUPROFEN [Concomitant]
     Active Substance: IBUPROFEN
     Indication: Pain
  24. RANITIDINE [Concomitant]
     Active Substance: RANITIDINE
  25. AXID [Concomitant]
     Active Substance: NIZATIDINE
  26. PEPCID [Concomitant]
     Active Substance: FAMOTIDINE
  27. TUMS [Concomitant]
     Active Substance: CALCIUM CARBONATE
  28. MILK OF MAGNESIA [Concomitant]
     Active Substance: MAGNESIUM HYDROXIDE
  29. ALKA-SELTZER [Concomitant]
     Active Substance: ANHYDROUS CITRIC ACID\ASPIRIN\SODIUM BICARBONATE
  30. TRADJENTA [Concomitant]
     Active Substance: LINAGLIPTIN
  31. AMLODIPINE [Concomitant]
     Active Substance: AMLODIPINE BESYLATE
  32. ALEVE [Concomitant]
     Active Substance: NAPROXEN SODIUM
  33. ZYPREXA [Concomitant]
     Active Substance: OLANZAPINE
  34. CYMBALTA [Concomitant]
     Active Substance: DULOXETINE HYDROCHLORIDE
  35. METFORMIN HYDROCHLORIDE [Concomitant]
     Active Substance: METFORMIN HYDROCHLORIDE
  36. CLEOCIN [Concomitant]
     Active Substance: CLINDAMYCIN PHOSPHATE
  37. HEMOCYTE [Concomitant]
  38. BRETHINE [Concomitant]
     Active Substance: TERBUTALINE SULFATE
  39. FERROUS SULFATE [Concomitant]
     Active Substance: FERROUS SULFATE
  40. METROGEL [Concomitant]
     Active Substance: METRONIDAZOLE
  41. ACETAMI/CODEIN [Concomitant]
  42. TRIMOX [Concomitant]
     Active Substance: AMOXICILLIN
  43. SPECTAZOLE [Concomitant]
     Active Substance: ECONAZOLE NITRATE
  44. CIPRO [Concomitant]
     Active Substance: CIPROFLOXACIN HYDROCHLORIDE
  45. PROMETHAZINE [Concomitant]
     Active Substance: PROMETHAZINE HYDROCHLORIDE
  46. MACROBID [Concomitant]
     Active Substance: NITROFURANTOIN\NITROFURANTOIN MONOHYDRATE
  47. PREVIDENT [Concomitant]
     Active Substance: SODIUM FLUORIDE
  48. DOXYCYCLINE HYCLATE [Concomitant]
     Active Substance: DOXYCYCLINE HYCLATE
  49. FLOXIN [Concomitant]
     Active Substance: OFLOXACIN
  50. AUGMENTIN [Concomitant]
     Active Substance: AMOXICILLIN\CLAVULANATE POTASSIUM
  51. NABUMETONE [Concomitant]
     Active Substance: NABUMETONE
  52. ULTRACET [Concomitant]
     Active Substance: ACETAMINOPHEN\TRAMADOL HYDROCHLORIDE
  53. SILVER SULFA [Concomitant]
  54. PROPO-N/APAP [Concomitant]
  55. DIFLUCAN [Concomitant]
     Active Substance: FLUCONAZOLE
  56. CLOBETASOL [Concomitant]
     Active Substance: CLOBETASOL
  57. PREDNISONE [Concomitant]
     Active Substance: PREDNISONE
  58. KLOR-CON [Concomitant]
     Active Substance: POTASSIUM CHLORIDE
  59. METOPROLOL TARTRATE [Concomitant]
     Active Substance: METOPROLOL TARTRATE
  60. BUSPIRONE HYDROCHLORIDE [Concomitant]
     Active Substance: BUSPIRONE HYDROCHLORIDE
  61. MIRTAZAPINE [Concomitant]
     Active Substance: MIRTAZAPINE
  62. LEVOFLOXACIN [Concomitant]
     Active Substance: LEVOFLOXACIN
  63. DICYCLOMINE [Concomitant]
     Active Substance: DICYCLOMINE HYDROCHLORIDE
  64. PHENTERMINE HYDROCHLORIDE/OXYPHENISATINE [Concomitant]
  65. LITHIUM [Concomitant]
     Active Substance: LITHIUM
  66. AMITIZA [Concomitant]
     Active Substance: LUBIPROSTONE
  67. HYDROXYZINE PAMOATE [Concomitant]
     Active Substance: HYDROXYZINE PAMOATE
  68. LYRICA [Concomitant]
     Active Substance: PREGABALIN
  69. NARCAN [Concomitant]
     Active Substance: NALOXONE HYDROCHLORIDE
  70. CARISOPRODOL [Concomitant]
     Active Substance: CARISOPRODOL
  71. METAXALONE [Concomitant]
     Active Substance: METAXALONE
  72. ZOLPIDEM [Concomitant]
     Active Substance: ZOLPIDEM TARTRATE
  73. AMLODIPINE BESILATE/BENAZEPRIL [Concomitant]
  74. OXYCONTIN [Concomitant]
     Active Substance: OXYCODONE HYDROCHLORIDE
  75. VIIBRYD [Concomitant]
     Active Substance: VILAZODONE HYDROCHLORIDE
  76. ABILIFY [Concomitant]
     Active Substance: ARIPIPRAZOLE
  77. VOLTAREN [Concomitant]
     Active Substance: DICLOFENAC SODIUM
  78. VICTOZA [Concomitant]
     Active Substance: LIRAGLUTIDE
  79. HYDROCHLOROTHIAZIDE\IRBESARTAN [Concomitant]
     Active Substance: HYDROCHLOROTHIAZIDE\IRBESARTAN
  80. LAMICTAL [Concomitant]
     Active Substance: LAMOTRIGINE
  81. ROSUVASTATIN CALCIUM [Concomitant]
     Active Substance: ROSUVASTATIN CALCIUM
  82. SUMATRIPTAN [Concomitant]
     Active Substance: SUMATRIPTAN
  83. HYDROMET [Concomitant]
     Active Substance: HOMATROPINE METHYLBROMIDE\HYDROCODONE BITARTRATE
  84. BENZONATATE [Concomitant]
     Active Substance: BENZONATATE
  85. SYMBICORT [Concomitant]
     Active Substance: BUDESONIDE\FORMOTEROL FUMARATE DIHYDRATE
  86. PROVENTIL [Concomitant]
     Active Substance: ALBUTEROL
  87. ATROVENT [Concomitant]
     Active Substance: IPRATROPIUM BROMIDE
  88. BUDEPRION [Concomitant]
     Active Substance: BUPROPION HYDROCHLORIDE
  89. DECADRON [Concomitant]
     Active Substance: DEXAMETHASONE
  90. ACTOS [Concomitant]
     Active Substance: PIOGLITAZONE HYDROCHLORIDE
  91. AMRIX [Concomitant]
     Active Substance: CYCLOBENZAPRINE HYDROCHLORIDE
  92. LACTULOSE [Concomitant]
     Active Substance: LACTULOSE
  93. NOVOLOG [Concomitant]
     Active Substance: INSULIN ASPART
  94. IMODIUM [Concomitant]
     Active Substance: LOPERAMIDE HYDROCHLORIDE
  95. PROBIOTICS NOS [Concomitant]
     Active Substance: PROBIOTICS NOS
  96. SODIUM CHLORIDE [Concomitant]
     Active Substance: SODIUM CHLORIDE
  97. MAGNESIUM SULFATE [Concomitant]
     Active Substance: MAGNESIUM SULFATE
  98. IOPAMIDOL [Concomitant]
     Active Substance: IOPAMIDOL
  99. VANCOMYCIN [Concomitant]
     Active Substance: VANCOMYCIN
  100. DIETARY SUPPLEMENT\PROBIOTICS [Concomitant]
     Active Substance: DIETARY SUPPLEMENT\PROBIOTICS
  101. ARIPIPRAZOLE [Concomitant]
     Active Substance: ARIPIPRAZOLE
  102. POLYETHYLENE GLYCOL [Concomitant]
     Active Substance: POLYETHYLENE GLYCOL
  103. MOTRIN [Concomitant]
     Active Substance: IBUPROFEN
  104. UNSPECIFIED INGREDIENT [Concomitant]
     Active Substance: UNSPECIFIED INGREDIENT
  105. DILANTIN [Concomitant]
     Active Substance: PHENYTOIN
  106. HEPARIN [Concomitant]
     Active Substance: HEPARIN SODIUM
  107. ROCEPHIN [Concomitant]
     Active Substance: CEFTRIAXONE SODIUM
  108. MELATONIN [Concomitant]
     Active Substance: MELATONIN

REACTIONS (9)
  - Acute kidney injury [Unknown]
  - Renal failure [Not Recovered/Not Resolved]
  - Chronic kidney disease [Unknown]
  - Systemic lupus erythematosus [Unknown]
  - Fibromyalgia [Unknown]
  - Neuropathy peripheral [Unknown]
  - Bipolar I disorder [Unknown]
  - Anxiety [Unknown]
  - Mania [Unknown]

NARRATIVE: CASE EVENT DATE: 20110101
